FAERS Safety Report 4810355-1 (Version None)
Quarter: 2005Q4

REPORT INFORMATION
  Report Type: 
  Country: None (occurrence: None)
  Receive Date: 20051026
  Receipt Date: 20050613
  Transmission Date: 20060501
  Serious: Yes (Hospitalization, Disabling)
  Sender: FDA-Public Use
  Company Number: US-ROCHE-407549

PATIENT
  Age: 19 Year
  Sex: Female
  Weight: 59 kg

DRUGS (3)
  1. ROCEPHIN [Suspect]
     Indication: OTITIS MEDIA
     Route: 042
     Dates: start: 20040211, end: 20040212
  2. PEPCID [Concomitant]
     Indication: GASTRITIS
     Route: 042
     Dates: start: 20040211, end: 20040214
  3. TYLENOL (CAPLET) [Concomitant]
     Route: 048
     Dates: start: 20040211, end: 20040216

REACTIONS (10)
  - ABDOMINAL PAIN UPPER [None]
  - AMNESIA [None]
  - CHOREA [None]
  - COORDINATION ABNORMAL [None]
  - DEPRESSION [None]
  - DYSPNOEA [None]
  - HEADACHE [None]
  - HYPOTENSION [None]
  - MUSCLE TWITCHING [None]
  - TREMOR [None]
